FAERS Safety Report 13232851 (Version 2)
Quarter: 2017Q1

REPORT INFORMATION
  Report Type: Spontaneous
  Country: US (occurrence: US)
  Receive Date: 20170214
  Receipt Date: 20170317
  Transmission Date: 20170428
  Serious: Yes (Death, Hospitalization, Other)
  Sender: FDA-Public Use
  Company Number: US-BAUSCH-BL-2017-003692

PATIENT
  Age: 64 Year
  Sex: Female
  Weight: 56.2 kg

DRUGS (1)
  1. RELISTOR [Suspect]
     Active Substance: METHYLNALTREXONE BROMIDE
     Indication: CONSTIPATION
     Route: 065

REACTIONS (10)
  - Respiratory distress [Recovering/Resolving]
  - Death [Fatal]
  - Leukocytosis [Unknown]
  - Hypothermia [Recovering/Resolving]
  - Septic shock [Recovering/Resolving]
  - Drug ineffective [Unknown]
  - Intestinal perforation [Unknown]
  - Hypotension [Unknown]
  - Hypoxia [Recovering/Resolving]
  - Abdominal pain [Unknown]

NARRATIVE: CASE EVENT DATE: 20170103
